FAERS Safety Report 5032193-X (Version None)
Quarter: 2006Q2

REPORT INFORMATION
  Report Type: 
  Country: None (occurrence: None)
  Receive Date: 20060619
  Receipt Date: 20051108
  Transmission Date: 20061013
  Serious: Yes (Death, Life-Threatening, Hospitalization)
  Sender: FDA-Public Use
  Company Number: 2005110023

PATIENT
  Age: 39 Year
  Sex: Male

DRUGS (2)
  1. CARISOPRODOL (350MG) TABLETS (CARISOPRODOL) [Suspect]
     Indication: BACK PAIN
     Dosage: 6 TABLETS (350 MG) / DAY
  2. VICODIN [Suspect]
     Dosage: 12 TABLETS (10 MG/500 MG) /DAY

REACTIONS (7)
  - CARDIO-RESPIRATORY ARREST [None]
  - DRUG TOXICITY [None]
  - HEPATOTOXICITY [None]
  - INCORRECT DOSE ADMINISTERED [None]
  - MULTI-ORGAN FAILURE [None]
  - PANCREATIC NECROSIS [None]
  - PANCREATITIS HAEMORRHAGIC [None]
